FAERS Safety Report 5750988-1 (Version None)
Quarter: 2008Q2

REPORT INFORMATION
  Report Type: 
  Country: None (occurrence: None)
  Receive Date: 20080528
  Receipt Date: 20080520
  Transmission Date: 20081010
  Serious: Yes (Other)
  Sender: FDA-Public Use
  Company Number: US-GENENTECH-260930

PATIENT

DRUGS (1)
  1. AVASTIN [Suspect]
     Indication: NEUROFIBROMATOSIS

REACTIONS (1)
  - NEUROFIBROMATOSIS [None]
